FAERS Safety Report 8264827-0 (Version None)
Quarter: 2012Q2

REPORT INFORMATION
  Report Type: 
  Country: None (occurrence: None)
  Receive Date: 20120406
  Receipt Date: 20120328
  Transmission Date: 20120825
  Serious: Yes (Other)
  Sender: FDA-Public Use
  Company Number: US-JNJFOC-20120400624

PATIENT
  Age: 67 Year
  Sex: Female

DRUGS (15)
  1. TYLENOL (CAPLET) [Suspect]
     Indication: ARTHRALGIA
     Dosage: USED A COUPLE OF YEARS AGO, 1-3 TIMES DAILY FOR OVER A YEAR
     Route: 048
  2. SERTRALINE HYDROCHLORIDE [Concomitant]
     Indication: DEPRESSION
     Route: 065
     Dates: start: 20060101
  3. NIACIN [Concomitant]
     Indication: BLOOD CHOLESTEROL INCREASED
     Route: 065
     Dates: start: 20100101
  4. LOVAZA [Concomitant]
     Indication: MEDICAL DIET
     Dosage: START DATE WAS 5-10 YEARS AGO
     Route: 065
  5. TYLENOL (CAPLET) [Suspect]
     Route: 048
  6. MULTI-VITAMINS [Concomitant]
     Indication: VITAMIN SUPPLEMENTATION
     Dosage: START DATE WAS ^YEARS AGO^
     Route: 065
  7. SIMVASTATIN [Concomitant]
     Indication: BLOOD CHOLESTEROL INCREASED
     Route: 065
     Dates: start: 19990101
  8. VITAMIN-MINERAL COMPOUND TAB [Concomitant]
     Indication: VITAMIN SUPPLEMENTATION
     Route: 065
     Dates: start: 20110101
  9. ESTER C [Concomitant]
     Indication: VITAMIN SUPPLEMENTATION
     Dosage: 500-1000 MG
     Route: 065
     Dates: start: 20070101
  10. CALCIUM WITH VITAMIN D [Concomitant]
     Indication: VITAMIN SUPPLEMENTATION
     Dosage: START DATE WAS 3-4 YEARS AGO
     Route: 065
  11. GLUCOSAMINE + CHONDROITIN SULFATE [Concomitant]
     Indication: DRUG THERAPY
     Route: 065
     Dates: start: 20000101
  12. ASPIRIN [Concomitant]
     Indication: CARDIAC DISORDER
     Route: 065
     Dates: start: 20070101
  13. VITAMIN D [Concomitant]
     Indication: VITAMIN SUPPLEMENTATION
     Dosage: START DATE WAS 3-4 YEARS AGO
     Route: 065
  14. PROBIOTICS [Concomitant]
     Indication: MEDICAL DIET
     Route: 065
     Dates: start: 20080101
  15. VITAMIN B-12 [Concomitant]
     Indication: VITAMIN SUPPLEMENTATION
     Dosage: START DATE WAS 1-2 MONTHS AGO
     Route: 065

REACTIONS (2)
  - RETINAL VEIN OCCLUSION [None]
  - HYPERTENSION [None]
